FAERS Safety Report 5376378-1 (Version None)
Quarter: 2007Q3

REPORT INFORMATION
  Report Type: 
  Country: None (occurrence: None)
  Receive Date: 20070702
  Receipt Date: 20070620
  Transmission Date: 20080115
  Serious: Yes (Other)
  Sender: FDA-Public Use
  Company Number: GB-PFIZER INC-2007045020

PATIENT
  Sex: Female
  Weight: 89 kg

DRUGS (1)
  1. DOSTINEX [Suspect]
     Indication: PROLACTINOMA
     Dosage: DAILY DOSE:500MCG/KG

REACTIONS (1)
  - MITRAL VALVE INCOMPETENCE [None]
